FAERS Safety Report 11744230 (Version 1)
Quarter: 2015Q4

REPORT INFORMATION
  Report Type: Spontaneous
  Country: US (occurrence: US)
  Receive Date: 20151116
  Receipt Date: 20151116
  Transmission Date: 20160304
  Serious: Yes (Hospitalization, Other)
  Sender: FDA-Public Use
  Company Number: US-JNJFOC-20150904377

PATIENT
  Age: 61 Year
  Sex: Female

DRUGS (15)
  1. IMBRUVICA [Suspect]
     Active Substance: IBRUTINIB
     Indication: CHRONIC LYMPHOCYTIC LEUKAEMIA
     Route: 048
     Dates: start: 20140606, end: 201407
  2. LASIX [Concomitant]
     Active Substance: FUROSEMIDE
     Route: 048
  3. LACTOBACILLUS ACIDOPHILUS [Concomitant]
     Active Substance: LACTOBACILLUS ACIDOPHILUS
     Dosage: 1 DF
     Route: 048
  4. DEXAMETHASONE. [Concomitant]
     Active Substance: DEXAMETHASONE
  5. MULTIVITAMINS [Concomitant]
     Active Substance: VITAMINS
  6. VENTOLIN [Concomitant]
     Active Substance: ALBUTEROL SULFATE
     Indication: DYSPNOEA
     Dosage: 2 PUFFS Q 4HRS PRN
  7. ALBUTEROL IPRATROPIUM [Concomitant]
  8. TESSALON [Concomitant]
     Active Substance: BENZONATATE
     Indication: COUGH
     Dosage: 1 DF
  9. OSCAL 500+D [Concomitant]
     Dosage: 500-200 MG
     Route: 048
  10. PRAVACHOL [Concomitant]
     Active Substance: PRAVASTATIN SODIUM
     Dosage: PM
     Route: 048
  11. SULFAMETHOXAZOLE-TRIMETHOPRIM (SMZ) [Concomitant]
     Active Substance: SULFAMETHOXAZOLE\TRIMETHOPRIM
     Dosage: ONE TAB BID M-W-F
     Route: 048
  12. IMBRUVICA [Suspect]
     Active Substance: IBRUTINIB
     Indication: CHRONIC LYMPHOCYTIC LEUKAEMIA
     Route: 048
     Dates: start: 20140822
  13. ALLOPURINOL. [Concomitant]
     Active Substance: ALLOPURINOL
     Dosage: 1/2 300 MG TABLET QD
  14. VENTOLIN [Concomitant]
     Active Substance: ALBUTEROL SULFATE
     Indication: WHEEZING
     Dosage: 2 PUFFS Q 4HRS PRN
  15. POTASSIUM CHLORIDE. [Concomitant]
     Active Substance: POTASSIUM CHLORIDE
     Route: 048

REACTIONS (19)
  - Pneumonia pneumococcal [Unknown]
  - Acute kidney injury [Unknown]
  - Arthritis [Not Recovered/Not Resolved]
  - Lymphoedema [Unknown]
  - Clostridium difficile colitis [Unknown]
  - Sepsis [Unknown]
  - Thrombocytopenia [Unknown]
  - Febrile neutropenia [Recovered/Resolved]
  - Bronchitis [Recovered/Resolved]
  - Pneumonia [Unknown]
  - Neutropenia [Unknown]
  - Hypokalaemia [Unknown]
  - Immunodeficiency common variable [Not Recovered/Not Resolved]
  - Hypertension [Unknown]
  - Asthenia [Unknown]
  - Asthma [Unknown]
  - Leukocytosis [Unknown]
  - Anaemia of chronic disease [Unknown]
  - Fatigue [Unknown]

NARRATIVE: CASE EVENT DATE: 2014
